FAERS Safety Report 7371501-1 (Version None)
Quarter: 2011Q1

REPORT INFORMATION
  Report Type: 
  Country: None (occurrence: None)
  Receive Date: 20110316
  Receipt Date: 20110304
  Transmission Date: 20110831
  Serious: Yes (Hospitalization)
  Sender: FDA-Public Use
  Company Number: JP-2011-10120

PATIENT
  Age: 92 Year
  Sex: Female
  Weight: 42 kg

DRUGS (10)
  1. SOLDACTONE (POTASSIUM CANRENOATE) [Concomitant]
  2. HANP (CARPERITIDE)INJECTION, 1000MCG [Suspect]
     Indication: CARDIAC FAILURE
     Dosage: 1000 MCG, BID, IV DRIP
     Route: 041
     Dates: start: 20110110, end: 20110113
  3. ISOSORBIDE DINITRATE [Concomitant]
  4. AMLODIPINE BESYLATE [Concomitant]
  5. LASIX [Concomitant]
  6. SAMSCA [Suspect]
     Indication: CARDIAC FAILURE
     Dosage: 15, 7.5 MG' 15  (MILLIGRAM(S), QD, ORAL
     Route: 048
     Dates: start: 20110120, end: 20110126
  7. SAMSCA [Suspect]
     Indication: CARDIAC FAILURE
     Dosage: 15, 7.5 MG' 15  (MILLIGRAM(S), QD, ORAL
     Route: 048
     Dates: start: 20110110, end: 20110114
  8. SAMSCA [Suspect]
     Indication: CARDIAC FAILURE
     Dosage: 15, 7.5 MG' 15  (MILLIGRAM(S), QD, ORAL
     Route: 048
     Dates: start: 20110119, end: 20110119
  9. SAMSCA [Suspect]
     Indication: CARDIAC FAILURE
     Dosage: 15, 7.5 MG' 15  (MILLIGRAM(S), QD, ORAL
     Route: 048
     Dates: start: 20110116, end: 20110116
  10. LACTEC (CALCIUM CHLORIDE DIHYDRATE, POTASSIUM CHLORIDE, SODIUM LACTATE [Concomitant]

REACTIONS (7)
  - RESTLESSNESS [None]
  - AGITATION [None]
  - DEHYDRATION [None]
  - HYPERNATRAEMIA [None]
  - CONDITION AGGRAVATED [None]
  - CARDIAC FAILURE [None]
  - PULMONARY HYPERTENSION [None]
